FAERS Safety Report 9105944 (Version 1)
Quarter: 2013Q1

REPORT INFORMATION
  Report Type: Spontaneous
  Country: KR (occurrence: KR)
  Receive Date: 20130221
  Receipt Date: 20130221
  Transmission Date: 20140127
  Serious: Yes (Other)
  Sender: FDA-Public Use
  Company Number: KR-ASTELLAS-2013JP000983

PATIENT
  Age: 77 Year
  Sex: Female

DRUGS (6)
  1. HARNAL [Suspect]
     Indication: POLLAKIURIA
     Route: 048
  2. VESICARE [Suspect]
     Indication: POLLAKIURIA
     Dosage: UNK
     Route: 048
  3. ANTIHYPERTENSIVES [Concomitant]
     Route: 065
  4. VALIUM                             /00017001/ [Concomitant]
     Route: 065
  5. ASTRIX [Concomitant]
     Route: 065
  6. MEDICINE FOR CHOLESTEROL [Concomitant]
     Route: 048

REACTIONS (2)
  - Blood pressure decreased [Recovered/Resolved]
  - Constipation [Not Recovered/Not Resolved]
